FAERS Safety Report 6159414-4 (Version None)
Quarter: 2009Q2

REPORT INFORMATION
  Report Type: 
  Country: None (occurrence: None)
  Receive Date: 20090417
  Receipt Date: 20090414
  Transmission Date: 20091009
  Serious: Yes (Death)
  Sender: FDA-Public Use
  Company Number: GR-ABBOTT-09P-066-0560745-02

PATIENT
  Sex: Female
  Weight: 83 kg

DRUGS (9)
  1. HUMIRA [Suspect]
     Indication: RHEUMATOID ARTHRITIS
     Route: 058
     Dates: start: 20050211, end: 20090227
  2. HUMIRA [Suspect]
  3. METHOTREXATE [Concomitant]
     Indication: RHEUMATOID ARTHRITIS
     Dates: start: 20000901
  4. FILICINE [Concomitant]
     Indication: RHEUMATOID ARTHRITIS
     Dates: start: 20000901
  5. DIAREN [Concomitant]
     Indication: HYPERTENSION
     Dates: start: 20041001
  6. PREZOLON [Concomitant]
     Indication: RHEUMATOID ARTHRITIS
     Dates: start: 20080401
  7. DIAMICRON [Concomitant]
     Indication: DIABETES MELLITUS
     Dates: start: 20050501
  8. VERBORIL [Concomitant]
     Indication: OSTEOARTHRITIS
     Dates: start: 20070901
  9. COMMERCIAL HUMIRA [Concomitant]
     Indication: RHEUMATOID ARTHRITIS
     Route: 058
     Dates: start: 20031225

REACTIONS (1)
  - BILE DUCT CANCER [None]
